FAERS Safety Report 6579473-4 (Version None)
Quarter: 2010Q1

REPORT INFORMATION
  Report Type: 
  Country: None (occurrence: None)
  Receive Date: 20100209
  Receipt Date: 20100209
  Transmission Date: 20100710
  Serious: No
  Sender: FDA-Public Use
  Company Number: None

PATIENT
  Age: 53 Year
  Sex: Female
  Weight: 49.8957 kg

DRUGS (2)
  1. LEVAQUIN [Suspect]
     Indication: SINUSITIS
     Dosage: 750 MG ONCE DAILY PO
     Route: 048
     Dates: start: 20100116, end: 20100124
  2. LEVAQUIN [Suspect]
     Indication: URINARY TRACT INFECTION
     Dosage: 750 MG ONCE DAILY PO
     Route: 048
     Dates: start: 20100116, end: 20100124

REACTIONS (14)
  - ARTHRITIS [None]
  - BALANCE DISORDER [None]
  - DEPRESSION [None]
  - ECONOMIC PROBLEM [None]
  - FATIGUE [None]
  - FEAR [None]
  - FEELING ABNORMAL [None]
  - HEADACHE [None]
  - IMPAIRED WORK ABILITY [None]
  - INSOMNIA [None]
  - MUSCULOSKELETAL STIFFNESS [None]
  - NO THERAPEUTIC RESPONSE [None]
  - PAIN [None]
  - PARAESTHESIA [None]
